FAERS Safety Report 19116301 (Version 2)
Quarter: 2021Q2

REPORT INFORMATION
  Report Type: Spontaneous
  Country: DE (occurrence: DE)
  Receive Date: 20210409
  Receipt Date: 20210504
  Transmission Date: 20210717
  Serious: Yes (Other)
  Sender: FDA-Public Use
  Company Number: NVSC2021DE074621

PATIENT
  Age: 42 Year
  Sex: Female

DRUGS (1)
  1. ENALAPRIL ? 1 A PHARMA [Suspect]
     Active Substance: ENALAPRIL MALEATE
     Indication: PRODUCT USED FOR UNKNOWN INDICATION
     Dosage: 0.5 DF, BID
     Route: 065
     Dates: start: 20200315

REACTIONS (1)
  - Circulatory collapse [Not Recovered/Not Resolved]

NARRATIVE: CASE EVENT DATE: 20210315
